FAERS Safety Report 8611995-4 (Version None)
Quarter: 2012Q3

REPORT INFORMATION
  Report Type: 
  Country: None (occurrence: None)
  Receive Date: 20120822
  Receipt Date: 20120817
  Transmission Date: 20120928
  Serious: Yes (Hospitalization, Other)
  Sender: FDA-Public Use
  Company Number: US-GLAXOSMITHKLINE-A0972238A

PATIENT
  Age: 38 Year
  Sex: Female

DRUGS (2)
  1. FLOLAN [Suspect]
     Indication: PULMONARY ARTERIAL HYPERTENSION
     Dosage: 36NGKM SEE DOSAGE TEXT
     Route: 042
     Dates: start: 19991004
  2. COUMADIN [Concomitant]
     Dosage: 4MG PER DAY
     Route: 065

REACTIONS (3)
  - FAILURE TO THRIVE [None]
  - GASTROINTESTINAL HAEMORRHAGE [None]
  - ABDOMINAL SYMPTOM [None]
